FAERS Safety Report 24005687 (Version 1)
Quarter: 2024Q2

REPORT INFORMATION
  Report Type: Spontaneous
  Country: US (occurrence: None)
  Receive Date: 20240622
  Receipt Date: 20240622
  Transmission Date: 20240716
  Serious: Yes (Hospitalization)
  Sender: FDA-Public Use
  Company Number: None

PATIENT
  Age: 26 Year
  Sex: Male
  Weight: 110.0 kg

DRUGS (1)
  1. CLOZAPINE [Suspect]
     Active Substance: CLOZAPINE
     Indication: Schizophrenia
     Dosage: FREQUENCY : AT BEDTIME;?
     Route: 048
     Dates: start: 20240129, end: 20240213

REACTIONS (11)
  - Cough [None]
  - Pyrexia [None]
  - Headache [None]
  - Liver function test increased [None]
  - Myalgia [None]
  - Hyperhidrosis [None]
  - Tachycardia [None]
  - Tachypnoea [None]
  - Hypertension [None]
  - Pulmonary congestion [None]
  - Acute myocardial infarction [None]

NARRATIVE: CASE EVENT DATE: 20240213
